FAERS Safety Report 23099773 (Version 1)
Quarter: 2023Q4

REPORT INFORMATION
  Report Type: Spontaneous
  Country: ES (occurrence: ES)
  Receive Date: 20231024
  Receipt Date: 20231024
  Transmission Date: 20240109
  Serious: Yes (Hospitalization)
  Sender: FDA-Public Use
  Company Number: None

PATIENT
  Age: 46 Year
  Sex: Female

DRUGS (1)
  1. PIFELTRO [Suspect]
     Active Substance: DORAVIRINE
     Indication: HIV infection
     Dosage: 100 MILLIGRAM, QD
     Route: 048
     Dates: start: 20230817, end: 20230823

REACTIONS (3)
  - Dysarthria [Recovering/Resolving]
  - Tremor [Recovering/Resolving]
  - Dysphemia [Recovering/Resolving]

NARRATIVE: CASE EVENT DATE: 20230818
